FAERS Safety Report 20903407 (Version 1)
Quarter: 2022Q2

REPORT INFORMATION
  Report Type: Spontaneous
  Country: KR (occurrence: KR)
  Receive Date: 20220601
  Receipt Date: 20220601
  Transmission Date: 20220720
  Serious: Yes (Other)
  Sender: FDA-Public Use
  Company Number: KR-BAXTER-2022BAX011179

PATIENT
  Age: 28 Month
  Sex: Female

DRUGS (12)
  1. CYCLOPHOSPHAMIDE [Suspect]
     Active Substance: CYCLOPHOSPHAMIDE
     Indication: Ewing^s sarcoma
     Dosage: 3 CYCLES OF VDC (VINCRISTINE, DOXORUBICIN, CYCLOPHOSPHAMIDE)
     Route: 065
  2. CYCLOPHOSPHAMIDE [Suspect]
     Active Substance: CYCLOPHOSPHAMIDE
     Dosage: 4 CYCLES OF CHEMOTHERAPY
     Route: 065
  3. DOXORUBICIN [Suspect]
     Active Substance: DOXORUBICIN
     Indication: Ewing^s sarcoma
     Dosage: 3 CYCLES OF VDC (VINCRISTINE, DOXORUBICIN, CYCLOPHOSPHAMIDE)
     Route: 065
  4. DOXORUBICIN [Suspect]
     Active Substance: DOXORUBICIN
     Dosage: 4 CYCLES OF CHEMOTHERAPY
     Route: 065
  5. IFOSFAMIDE [Suspect]
     Active Substance: IFOSFAMIDE
     Indication: Ewing^s sarcoma
     Dosage: 2 CYCLES OF IE (IFOSFAMIDE, ETOPOSIDE)
     Route: 065
  6. IFOSFAMIDE [Suspect]
     Active Substance: IFOSFAMIDE
     Dosage: 4 CYCLES OF CHEMOTHERAPY
     Route: 065
  7. VINCRISTINE [Suspect]
     Active Substance: VINCRISTINE
     Indication: Ewing^s sarcoma
     Dosage: 3 CYCLES OF 3 CYCLES OF VDC (VINCRISTINE, DOXORUBICIN, CYCLOPHOSPHAMIDE)
     Route: 065
  8. VINCRISTINE [Suspect]
     Active Substance: VINCRISTINE
     Dosage: 4 CYCLES OF CHEMOTHERAPY
     Route: 065
  9. ETOPOSIDE [Suspect]
     Active Substance: ETOPOSIDE
     Indication: Ewing^s sarcoma
     Dosage: 2 CYCLES OF 2 CYCLES OF IE (IFOSFAMIDE, ETOPOSIDE)
     Route: 065
  10. ETOPOSIDE [Suspect]
     Active Substance: ETOPOSIDE
     Dosage: 4 CYCLES OF CHEMOTHERAPY
     Route: 065
  11. ERYTHROPOIETIN [Suspect]
     Active Substance: ERYTHROPOIETIN
     Indication: Anaemia prophylaxis
     Dosage: 300 IU/KG, FOR A TOTAL OF 4,000 IU, 300 UNK, 3X A WEEK
     Route: 042
  12. FILGRASTIM [Suspect]
     Active Substance: FILGRASTIM
     Indication: Anaemia prophylaxis
     Dosage: EPO AND G-CSF WERE ADMINISTERED UNTIL THE FIFTH CHEMOTHERAPY CYCLE (THREE CYCLES OF VDC AND TWO OF I
     Route: 065

REACTIONS (2)
  - Febrile neutropenia [Recovered/Resolved]
  - Haemoglobin decreased [Recovered/Resolved]
